FAERS Safety Report 21622172 (Version 2)
Quarter: 2023Q4

REPORT INFORMATION
  Report Type: Report from Study
  Country: US (occurrence: US)
  Receive Date: 20221121
  Receipt Date: 20231031
  Transmission Date: 20240110
  Serious: Yes (Other)
  Sender: FDA-Public Use
  Company Number: US-ABBVIE-22K-163-4382156-00

PATIENT
  Sex: Male

DRUGS (4)
  1. HUMIRA [Suspect]
     Active Substance: ADALIMUMAB
     Indication: Rheumatoid arthritis
     Dosage: CITRATE FREE , STRENGTH: 40 MG
     Route: 058
     Dates: start: 20220315
  2. HUMIRA [Suspect]
     Active Substance: ADALIMUMAB
     Indication: Crohn^s disease
     Dosage: CITRATE FREE , STRENGTH: 40 MG
     Route: 058
  3. PFIZER-BIONTECH COVID-19 VACCINE [Concomitant]
     Active Substance: TOZINAMERAN
     Indication: COVID-19 immunisation
     Dosage: 1 IN ONCE, FIRST DOSE
     Route: 030
     Dates: start: 20210205, end: 20210205
  4. PFIZER-BIONTECH COVID-19 VACCINE [Concomitant]
     Active Substance: TOZINAMERAN
     Indication: COVID-19 immunisation
     Dosage: 1 IN ONCE, SECOND DOSE
     Route: 030
     Dates: start: 20210707, end: 20210707

REACTIONS (5)
  - Nephrolithiasis [Recovered/Resolved]
  - COVID-19 [Recovered/Resolved]
  - Therapeutic response unexpected [Unknown]
  - Nephrolithiasis [Recovered/Resolved]
  - Staphylococcal infection [Recovering/Resolving]
